FAERS Safety Report 5852299-2 (Version None)
Quarter: 2008Q3

REPORT INFORMATION
  Report Type: 
  Country: None (occurrence: None)
  Receive Date: 20080819
  Receipt Date: 20080808
  Transmission Date: 20090109
  Serious: No
  Sender: FDA-Public Use
  Company Number: US024334

PATIENT
  Sex: Male

DRUGS (2)
  1. FENTORA [Suspect]
     Indication: NEURALGIA
     Dosage: 100 UG TID BUCCAL
     Route: 002
     Dates: start: 20080806
  2. AVINZA [Concomitant]

REACTIONS (4)
  - ACCIDENTAL EXPOSURE [None]
  - DRUG ADMINISTRATION ERROR [None]
  - MEDICATION ERROR [None]
  - NAUSEA [None]
